FAERS Safety Report 6436177-6 (Version None)
Quarter: 2009Q4

REPORT INFORMATION
  Report Type: 
  Country: None (occurrence: None)
  Receive Date: 20091111
  Receipt Date: 20091101
  Transmission Date: 20100525
  Serious: Yes (Death)
  Sender: FDA-Public Use
  Company Number: JO-ROCHE-659260

PATIENT
  Sex: Male

DRUGS (2)
  1. XELODA [Suspect]
     Route: 048
  2. XELODA [Suspect]
     Dosage: DOSE REDUCED
     Route: 048

REACTIONS (2)
  - DIARRHOEA [None]
  - MALIGNANT NEOPLASM PROGRESSION [None]
